FAERS Safety Report 14164290 (Version 1)
Quarter: 2017Q4

REPORT INFORMATION
  Report Type: Spontaneous
  Country: ES (occurrence: ES)
  Receive Date: 20171107
  Receipt Date: 20171107
  Transmission Date: 20180321
  Serious: Yes (Other)
  Sender: FDA-Public Use
  Company Number: ES-HETERO-HET2017ES00319

PATIENT

DRUGS (2)
  1. LINEZOLID. [Suspect]
     Active Substance: LINEZOLID
     Indication: OSTEOMYELITIS
  2. LINEZOLID. [Suspect]
     Active Substance: LINEZOLID
     Indication: OSTEOARTHRITIS
     Route: 065

REACTIONS (4)
  - Food intolerance [Recovered/Resolved]
  - Weight decreased [Recovered/Resolved]
  - Toxicity to various agents [Recovered/Resolved]
  - Bone marrow failure [Recovered/Resolved]
